FAERS Safety Report 24084228 (Version 1)
Quarter: 2024Q3

REPORT INFORMATION
  Report Type: Spontaneous
  Country: JP (occurrence: JP)
  Receive Date: 20240712
  Receipt Date: 20240712
  Transmission Date: 20241017
  Serious: No
  Sender: PIERRE FABRE MEDICAMENT
  Company Number: JP-PFM-2022-03440

PATIENT
  Age: 13 Year
  Sex: Female

DRUGS (3)
  1. PROPRANOLOL [Suspect]
     Active Substance: PROPRANOLOL HYDROCHLORIDE
     Indication: Lymphangioma
     Dosage: 90 MG/DAY
     Route: 065
  2. PROPRANOLOL [Suspect]
     Active Substance: PROPRANOLOL HYDROCHLORIDE
     Indication: Off label use
  3. HERBALS [Suspect]
     Active Substance: HERBALS
     Indication: Lymphangioma
     Dosage: 7.5 G/DAY
     Route: 065

REACTIONS (6)
  - Gastrointestinal disorder [Unknown]
  - Liver disorder [Unknown]
  - Drug ineffective [Unknown]
  - Product use in unapproved indication [Unknown]
  - Off label use [Unknown]
  - Product use issue [Unknown]
